FAERS Safety Report 6037849-8 (Version None)
Quarter: 2009Q1

REPORT INFORMATION
  Report Type: 
  Country: None (occurrence: None)
  Receive Date: 20090114
  Receipt Date: 20090114
  Transmission Date: 20090719
  Serious: Yes (Hospitalization, Disabling)
  Sender: FDA-Public Use
  Company Number: None

PATIENT
  Age: 51 Year
  Sex: Male
  Weight: 78.0187 kg

DRUGS (1)
  1. SEROQUEL [Suspect]
     Indication: SLEEP DISORDER
     Dosage: 25MG 1-2TABLETS AT BEDTIME ONE TIME
     Dates: start: 20080604

REACTIONS (3)
  - ANXIETY [None]
  - NERVOUS SYSTEM DISORDER [None]
  - NO THERAPEUTIC RESPONSE [None]
